FAERS Safety Report 6355775-1 (Version None)
Quarter: 2009Q3

REPORT INFORMATION
  Report Type: 
  Country: None (occurrence: None)
  Receive Date: 20090911
  Receipt Date: 20090911
  Transmission Date: 20100115
  Serious: Yes (Hospitalization)
  Sender: FDA-Public Use
  Company Number: None

PATIENT
  Sex: Male

DRUGS (10)
  1. TORISEL [Suspect]
     Indication: PROSTATE CANCER
     Dosage: 25 MG WEEKLY IV  (8/26/09 - ON HOLD)
     Route: 042
  2. IRON [Concomitant]
  3. SENNEKOT [Concomitant]
  4. MULTI-VITAMIN [Concomitant]
  5. VITAMIN B-12 [Concomitant]
  6. CALCIUM + D [Concomitant]
  7. PROSTION [Concomitant]
  8. METOPROLOL SUCCINATE [Concomitant]
  9. MICARDIS HCT [Concomitant]
  10. CRESTOR [Concomitant]

REACTIONS (3)
  - ASTHENIA [None]
  - DEHYDRATION [None]
  - URINARY TRACT INFECTION [None]
